FAERS Safety Report 21548794 (Version 1)
Quarter: 2022Q4

REPORT INFORMATION
  Report Type: Spontaneous
  Country: CA (occurrence: None)
  Receive Date: 20221103
  Receipt Date: 20221103
  Transmission Date: 20230112
  Serious: Yes (Hospitalization, Other)
  Sender: FDA-Public Use
  Company Number: 2022A359908

PATIENT
  Age: 34 Year
  Sex: Female
  Weight: 68 kg

DRUGS (5)
  1. QUETIAPINE FUMARATE [Suspect]
     Active Substance: QUETIAPINE FUMARATE
     Indication: Psychotic disorder
     Route: 048
  2. ATIVAN [Suspect]
     Active Substance: LORAZEPAM
     Indication: Psychotic disorder
     Dosage: 1.0MG UNKNOWN
     Route: 065
  3. OLANZAPINE [Suspect]
     Active Substance: OLANZAPINE
     Indication: Psychotic disorder
     Route: 065
  4. RISPERDAL CONSTA [Suspect]
     Active Substance: RISPERIDONE
     Indication: Psychotic disorder
     Dosage: 37.5MG UNKNOWN
     Route: 030
  5. RISPERIDONE [Suspect]
     Active Substance: RISPERIDONE
     Indication: Psychotic disorder
     Dosage: 0.5MG UNKNOWN
     Route: 065

REACTIONS (4)
  - Amenorrhoea [Unknown]
  - Pituitary tumour benign [Unknown]
  - Blood cholesterol increased [Unknown]
  - Blood prolactin increased [Unknown]
